FAERS Safety Report 9851254 (Version 1)
Quarter: 2014Q1

REPORT INFORMATION
  Report Type: Spontaneous
  Country: US (occurrence: US)
  Receive Date: 20140128
  Receipt Date: 20140128
  Transmission Date: 20141002
  Serious: Yes (Other)
  Sender: FDA-Public Use
  Company Number: US-ABBVIE-14P-163-1192505-00

PATIENT
  Age: 65 Year
  Sex: Female
  Weight: 68.1 kg

DRUGS (9)
  1. HUMIRA [Suspect]
     Indication: CROHN^S DISEASE
     Dates: start: 2009
  2. ASACOL [Concomitant]
     Indication: CROHN^S DISEASE
  3. VALTRAX [Concomitant]
     Indication: HERPES ZOSTER
  4. CRESTOR [Concomitant]
     Indication: BLOOD CHOLESTEROL INCREASED
  5. NEXIUM [Concomitant]
     Indication: GASTROOESOPHAGEAL REFLUX DISEASE
  6. PRISTIQ [Concomitant]
     Indication: DEPRESSION
  7. EVAMIST [Concomitant]
     Indication: HORMONE REPLACEMENT THERAPY
  8. PROMETRIUM [Concomitant]
     Indication: HORMONE REPLACEMENT THERAPY
  9. BENTYL [Concomitant]
     Indication: GASTRIC DISORDER

REACTIONS (3)
  - Hepatobiliary scan abnormal [Recovered/Resolved]
  - Injection site pain [Not Recovered/Not Resolved]
  - Gallbladder disorder [Recovered/Resolved]
